FAERS Safety Report 7628373 (Version 4)
Quarter: 2014Q1

REPORT INFORMATION
  Report Type: Spontaneous
  Country: US (occurrence: US)
  Receive Date: 20101013
  Receipt Date: 20140121
  Transmission Date: 20141002
  Serious: Yes (Other)
  Sender: FDA-Public Use
  Company Number: US-US-EMD SERONO, INC.-7020774

PATIENT
  Sex: Female
  Weight: 102 kg

DRUGS (4)
  1. REBIF [Suspect]
     Indication: MULTIPLE SCLEROSIS
     Route: 058
     Dates: start: 20040607
  2. NAPROSYN                           /00256201/ [Concomitant]
     Indication: SPINAL OSTEOARTHRITIS
  3. LISINOPRIL [Concomitant]
     Indication: BLOOD PRESSURE
  4. FLEXERIL                           /00428402/ [Concomitant]
     Indication: MUSCLE SPASMS

REACTIONS (4)
  - Sarcoidosis [Recovering/Resolving]
  - Optic neuritis [Not Recovered/Not Resolved]
  - Glaucoma [Not Recovered/Not Resolved]
  - Macular degeneration [Not Recovered/Not Resolved]
